FAERS Safety Report 9387476 (Version 1)
Quarter: 2013Q3

REPORT INFORMATION
  Report Type: Spontaneous
  Country: US (occurrence: None)
  Receive Date: 20130702
  Receipt Date: 20130702
  Transmission Date: 20140515
  Serious: Yes (Other)
  Sender: FDA-Public Use
  Company Number: 2013P1010617

PATIENT
  Age: 42 Year
  Sex: Female

DRUGS (2)
  1. INFUMORPH [Suspect]
     Route: 037
  2. BACLOFEN [Suspect]
     Route: 037

REACTIONS (4)
  - Fall [None]
  - Head injury [None]
  - Muscle spasms [None]
  - Pain [None]
